FAERS Safety Report 25416677 (Version 2)
Quarter: 2025Q3

REPORT INFORMATION
  Report Type: Spontaneous
  Country: CN (occurrence: CN)
  Receive Date: 20250610
  Receipt Date: 20250701
  Transmission Date: 20251021
  Serious: No
  Sender: BLUEPRINT MEDICINES
  Company Number: CN-CSTONE PHARMACEUTICALS (SUZHOU) CO., LTD.-2025CN00335

PATIENT
  Age: 70 Year
  Sex: Female

DRUGS (3)
  1. AYVAKIT [Suspect]
     Active Substance: AVAPRITINIB
     Indication: Leukaemia
     Dosage: 100 MILLIGRAM, BID
     Route: 048
     Dates: start: 20250508
  2. ENASIDENIB [Concomitant]
     Active Substance: ENASIDENIB
     Indication: Leukaemia
     Dosage: 1 TABLET, BID
     Route: 048
     Dates: start: 20250508, end: 20250522
  3. ENASIDENIB [Concomitant]
     Active Substance: ENASIDENIB
     Dosage: 1 TABLET, BID
     Route: 048

REACTIONS (1)
  - Off label use [Unknown]

NARRATIVE: CASE EVENT DATE: 20250508
